FAERS Safety Report 25738501 (Version 2)
Quarter: 2025Q3

REPORT INFORMATION
  Report Type: Report from Study
  Country: US (occurrence: US)
  Receive Date: 20250829
  Receipt Date: 20250903
  Transmission Date: 20251020
  Serious: Yes (Other)
  Sender: ABBVIE
  Company Number: US-ABBVIE-6433890

PATIENT
  Age: 48 Year
  Sex: Female

DRUGS (1)
  1. HUMIRA [Suspect]
     Active Substance: ADALIMUMAB
     Indication: Hidradenitis
     Route: 058
     Dates: start: 20181224

REACTIONS (11)
  - Syncope [Recovered/Resolved]
  - Hypotension [Recovered/Resolved]
  - Head injury [Unknown]
  - Irritable bowel syndrome [Recovered/Resolved]
  - Papule [Not Recovered/Not Resolved]
  - Hormone level abnormal [Unknown]
  - Hidradenitis [Not Recovered/Not Resolved]
  - Constipation [Recovered/Resolved]
  - Skin laceration [Not Recovered/Not Resolved]
  - Stress [Unknown]
  - Accident [Unknown]

NARRATIVE: CASE EVENT DATE: 20250701
